FAERS Safety Report 9571847 (Version 1)
Quarter: 2013Q4

REPORT INFORMATION
  Report Type: Report from Study
  Country: US (occurrence: US)
  Receive Date: 20131001
  Receipt Date: 20131001
  Transmission Date: 20140711
  Serious: Yes (Death)
  Sender: FDA-Public Use
  Company Number: US-PFIZER INC-2013275316

PATIENT
  Age: 43 Year
  Sex: Male

DRUGS (3)
  1. OXYCODONE HYDROCHLORIDE [Suspect]
     Dosage: UNK
  2. HEROIN [Suspect]
     Dosage: UNK
  3. CODEINE [Suspect]

REACTIONS (2)
  - Overdose [Fatal]
  - Cardio-respiratory arrest [Fatal]
